FAERS Safety Report 11998760 (Version 1)
Quarter: 2016Q1

REPORT INFORMATION
  Report Type: Spontaneous
  Country: US (occurrence: None)
  Receive Date: 20160203
  Receipt Date: 20160203
  Transmission Date: 20160526
  Serious: No
  Sender: FDA-Public Use
  Company Number: None

PATIENT
  Sex: Female
  Weight: 68.04 kg

DRUGS (15)
  1. WARFARIN [Concomitant]
     Active Substance: WARFARIN
  2. BIO PLAVANOIDS [Concomitant]
  3. METOPROLOL. [Concomitant]
     Active Substance: METOPROLOL
  4. VITAMIN E [Concomitant]
     Active Substance: .ALPHA.-TOCOPHEROL
  5. TRAMADOL 50 MG ZYDUS [Suspect]
     Active Substance: TRAMADOL
     Indication: BACK PAIN
     Dosage: 50 MG, 3 PILLS, TWICE DAILY, BY MOUTH
     Dates: start: 2011
  6. METFORMIN [Concomitant]
     Active Substance: METFORMIN HYDROCHLORIDE
  7. VIT. B [Concomitant]
  8. VIT. D [Concomitant]
  9. TRAMADOL 50 MG ZYDUS [Suspect]
     Active Substance: TRAMADOL
     Indication: MUSCULOSKELETAL PAIN
     Dosage: 50 MG, 3 PILLS, TWICE DAILY, BY MOUTH
     Dates: start: 2011
  10. ARMOUR THYROID [Concomitant]
     Active Substance: THYROID, PORCINE
  11. VITAMIN C [Concomitant]
     Active Substance: ASCORBIC ACID
  12. LISINOPRIL. [Concomitant]
     Active Substance: LISINOPRIL
  13. POTASSIUM [Concomitant]
     Active Substance: POTASSIUM
  14. VIT. A [Concomitant]
  15. CINAMON [Concomitant]

REACTIONS (2)
  - Muscle spasms [None]
  - Therapy change [None]

NARRATIVE: CASE EVENT DATE: 2013
